FAERS Safety Report 9834080 (Version 4)
Quarter: 2014Q3

REPORT INFORMATION
  Report Type: Report from Study
  Country: CA (occurrence: CA)
  Receive Date: 20140122
  Receipt Date: 20140707
  Transmission Date: 20150326
  Serious: Yes (Hospitalization, Other)
  Sender: FDA-Public Use
  Company Number: CA-ROCHE-1128850

PATIENT
  Age: 44 Year
  Sex: Female
  Weight: 105 kg

DRUGS (17)
  1. LYRICA [Concomitant]
     Active Substance: PREGABALIN
  2. HYDROMORPH CONTIN [Concomitant]
     Active Substance: HYDROMORPHONE
  3. DOMPERIDONE [Concomitant]
     Active Substance: DOMPERIDONE
  4. BETAMETHASONE [Concomitant]
     Active Substance: BETAMETHASONE
  5. ACTEMRA [Suspect]
     Active Substance: TOCILIZUMAB
     Indication: RHEUMATOID ARTHRITIS
     Route: 042
     Dates: start: 20120530, end: 20131121
  6. GLYBURIDE. [Concomitant]
     Active Substance: GLYBURIDE
  7. PREDNISONE. [Concomitant]
     Active Substance: PREDNISONE
  8. DILAUDID [Concomitant]
     Active Substance: HYDROMORPHONE HYDROCHLORIDE
  9. VERAPAMIL [Concomitant]
     Active Substance: VERAPAMIL HYDROCHLORIDE
  10. AMOXICILLIN. [Concomitant]
     Active Substance: AMOXICILLIN
  11. FML FORTE [Concomitant]
     Active Substance: FLUOROMETHOLONE
     Route: 048
  12. FLONASE [Concomitant]
     Active Substance: FLUTICASONE PROPIONATE
  13. NORTRIPTYLINE [Concomitant]
     Active Substance: NORTRIPTYLINE
  14. LEUCOVORIN [Concomitant]
     Active Substance: LEUCOVORIN
  15. METHOTREXATE [Concomitant]
     Active Substance: METHOTREXATE
  16. TRAZODONE [Concomitant]
     Active Substance: TRAZODONE HYDROCHLORIDE
  17. SALBUTAMOL [Concomitant]
     Active Substance: ALBUTEROL

REACTIONS (14)
  - Myocarditis [Not Recovered/Not Resolved]
  - Alopecia [Not Recovered/Not Resolved]
  - Soft tissue disorder [Not Recovered/Not Resolved]
  - Oropharyngeal pain [Not Recovered/Not Resolved]
  - Cardiac failure congestive [Unknown]
  - Pneumonia [Unknown]
  - Chest discomfort [Recovered/Resolved]
  - Malaise [Not Recovered/Not Resolved]
  - Road traffic accident [Unknown]
  - Nasal congestion [Not Recovered/Not Resolved]
  - Nasopharyngitis [Recovered/Resolved]
  - Pyrexia [Recovered/Resolved]
  - Fatigue [Not Recovered/Not Resolved]
  - Myalgia [Not Recovered/Not Resolved]

NARRATIVE: CASE EVENT DATE: 201206
